FAERS Safety Report 25153337 (Version 1)
Quarter: 2025Q2

REPORT INFORMATION
  Report Type: Report from Study
  Country: BR (occurrence: BR)
  Receive Date: 20250403
  Receipt Date: 20250403
  Transmission Date: 20250717
  Serious: Yes (Hospitalization)
  Sender: BIOGEN
  Company Number: BR-BIOGEN-2025BI01306012

PATIENT
  Age: 44 Year
  Sex: Female
  Weight: 51 kg

DRUGS (5)
  1. TYSABRI [Suspect]
     Active Substance: NATALIZUMAB
     Indication: Multiple sclerosis
     Route: 050
     Dates: start: 2023
  2. Aspart NOS [Concomitant]
     Indication: Product used for unknown indication
     Route: 050
     Dates: start: 2022
  3. VALPROIC ACID [Concomitant]
     Active Substance: VALPROIC ACID
     Indication: Epilepsy
     Route: 050
     Dates: start: 2017
  4. VALPROIC ACID [Concomitant]
     Active Substance: VALPROIC ACID
     Route: 050
  5. despaixina hydrochloride NOS [Concomitant]
     Indication: Dizziness
     Route: 050
     Dates: start: 2022

REACTIONS (7)
  - Diabetes mellitus [Recovered/Resolved]
  - Blood glucose abnormal [Recovered/Resolved]
  - Vomiting [Unknown]
  - Hypoglycaemia [Recovered/Resolved]
  - Hyperhidrosis [Recovered/Resolved]
  - Malaise [Recovered/Resolved]
  - Mental impairment [Unknown]

NARRATIVE: CASE EVENT DATE: 20240101
